FAERS Safety Report 19196527 (Version 1)
Quarter: 2021Q2

REPORT INFORMATION
  Report Type: Spontaneous
  Country: JP (occurrence: JP)
  Receive Date: 20210429
  Receipt Date: 20210429
  Transmission Date: 20210717
  Serious: Yes (Other)
  Sender: FDA-Public Use
  Company Number: JP-BAUSCH-BL-2021-014548

PATIENT
  Age: 69 Year
  Sex: Male

DRUGS (2)
  1. LUCENTIS [Concomitant]
     Active Substance: RANIBIZUMAB
     Indication: CHORIORETINAL DISORDER
     Dosage: INTRAVITREAL INJECTIONS, 0.5 MG/0.05 ML
     Route: 065
  2. VERTEPORFIN [Suspect]
     Active Substance: VERTEPORFIN
     Indication: CHORIORETINAL DISORDER
     Route: 065

REACTIONS (2)
  - Subretinal fluid [Recovered/Resolved]
  - Product use in unapproved indication [Unknown]
